FAERS Safety Report 18273677 (Version 1)
Quarter: 2020Q3

REPORT INFORMATION
  Report Type: Spontaneous
  Country: DE (occurrence: DE)
  Receive Date: 20200916
  Receipt Date: 20200916
  Transmission Date: 20201103
  Serious: Yes (Hospitalization, Other)
  Sender: FDA-Public Use
  Company Number: DE-PFIZER INC-2020354685

PATIENT
  Age: 19 Year
  Sex: Male

DRUGS (13)
  1. METOPROLOL. [Concomitant]
     Active Substance: METOPROLOL
     Dosage: 23.75 MG (1?0?1?0)
     Route: 048
  2. ONDANSETRON [Concomitant]
     Active Substance: ONDANSETRON
     Dosage: 8 MG (1?0?1?0)
     Route: 048
  3. LEVOTHYROXINE SODIUM. [Concomitant]
     Active Substance: LEVOTHYROXINE SODIUM
     Dosage: 50 UG (0.5?0?0?0)
     Route: 048
  4. ALLOPURINOL. [Concomitant]
     Active Substance: ALLOPURINOL
     Dosage: 300 MG (1?0?0?0)
     Route: 048
  5. CYCLOPHOSPHAMID [Suspect]
     Active Substance: CYCLOPHOSPHAMIDE
     Dosage: UNK MG (LAST 29 06 2020)
     Dates: start: 20200629
  6. PREDNISOLON [PREDNISOLONE] [Concomitant]
     Active Substance: PREDNISOLONE
     Dosage: 10 MG (1?0.5?0?0, LAST 29 06 2020)
     Route: 048
  7. VINCRISTIN [Suspect]
     Active Substance: VINCRISTINE
     Dosage: UNK MG (LAST 29 06 2020)
     Dates: start: 20200629
  8. COTRIM?CT [Concomitant]
     Active Substance: SULFAMETHOXAZOLE\TRIMETHOPRIM
     Dosage: UNK (800 | 160 MG / WEEK, 1X MON WED FRI)
     Route: 048
  9. NALOXONE HYDROCHLORIDE/TILIDINE HYDROCHLORIDE [Concomitant]
     Active Substance: NALOXONE HYDROCHLORIDE\TILIDINE HYDROCHLORIDE
     Dosage: UNK (4|50 MG, 1?0?0?0)
     Route: 048
  10. RITUXIMAB. [Suspect]
     Active Substance: RITUXIMAB
     Dosage: UNK MG (LAST 29 06 2020)
     Dates: start: 20200629
  11. DOXORUBICIN [Suspect]
     Active Substance: DOXORUBICIN
     Dosage: UNK MG (LAST 29 06 2020)
     Dates: start: 20200629
  12. MCP [Concomitant]
     Active Substance: METOCLOPRAMIDE HYDROCHLORIDE
     Dosage: 10 MG (1?1?1?0)
     Route: 048
  13. PANTOPRAZOL [PANTOPRAZOLE] [Concomitant]
     Active Substance: PANTOPRAZOLE
     Dosage: 40 MG (1?0?0?0)
     Route: 048

REACTIONS (5)
  - Musculoskeletal pain [Recovering/Resolving]
  - Localised infection [Recovering/Resolving]
  - Pericardial effusion [Unknown]
  - Chest pain [Recovering/Resolving]
  - Pericarditis [Unknown]
